FAERS Safety Report 9451456 (Version 2)
Quarter: 2013Q3

REPORT INFORMATION
  Report Type: Spontaneous
  Country: US (occurrence: US)
  Receive Date: 20130809
  Receipt Date: 20130830
  Transmission Date: 20140515
  Serious: Yes (Hospitalization, Other)
  Sender: FDA-Public Use
  Company Number: US-ELI_LILLY_AND_COMPANY-US201307010360

PATIENT
  Age: 47 Year
  Sex: Female
  Weight: 83.27 kg

DRUGS (8)
  1. HUMALOG LISPRO [Suspect]
     Indication: DIABETES MELLITUS
     Dosage: 40 U, QD
     Route: 058
     Dates: start: 19991202
  2. LOVASTATIN [Concomitant]
     Dosage: 10 MG, UNK
  3. EFFEXOR XR [Concomitant]
     Dosage: 75 MG, UNK
  4. AMLODIPINE [Concomitant]
     Dosage: 10 MG, UNK
  5. DIOVAN HCT [Concomitant]
  6. METOPROLOL [Concomitant]
     Dosage: 100 MG, UNK
  7. SYNTHROID [Concomitant]
     Dosage: 125 UG, UNK
  8. VITAMIN D [Concomitant]
     Dosage: 50000 IU, WEEKLY (1/W)

REACTIONS (3)
  - Blood glucose increased [Recovered/Resolved]
  - Hyperglycaemia [Recovered/Resolved]
  - Diabetic ketoacidosis [Unknown]
